FAERS Safety Report 4312603-3 (Version None)
Quarter: 2004Q1

REPORT INFORMATION
  Report Type: 
  Country: None (occurrence: None)
  Receive Date: 20040302
  Receipt Date: 20031230
  Transmission Date: 20041129
  Serious: No
  Sender: FDA-Public Use
  Company Number: 200331089BWH

PATIENT
  Age: 65 Year
  Sex: Male
  Weight: 84.8226 kg

DRUGS (7)
  1. LEVITRA [Suspect]
     Indication: ERECTILE DYSFUNCTION
     Dosage: 10 MG TOTAL , DAILY, ORAL, 20 MG TOTAL DAILY ORAL
     Route: 048
  2. FLOMAX [Concomitant]
  3. SELEGILINE HYDROCHLORIDE [Concomitant]
  4. MULTI-VITAMIN [Concomitant]
  5. VITAMIN E [Concomitant]
  6. METROLOTION [Concomitant]
  7. VIAGRA [Concomitant]

REACTIONS (2)
  - DYSPEPSIA [None]
  - ERECTILE DYSFUNCTION [None]
